FAERS Safety Report 23625966 (Version 1)
Quarter: 2024Q1

REPORT INFORMATION
  Report Type: Report from Study
  Country: FR (occurrence: FR)
  Receive Date: 20240313
  Receipt Date: 20240313
  Transmission Date: 20240410
  Serious: Yes (Other)
  Sender: FDA-Public Use
  Company Number: FR-SUN PHARMACEUTICAL INDUSTRIES LTD-2024R1-435438

PATIENT
  Age: 72 Year
  Sex: Male

DRUGS (3)
  1. METHYLPREDNISOLONE [Suspect]
     Active Substance: METHYLPREDNISOLONE
     Indication: Pleural mesothelioma malignant
     Dosage: 120 MILLIGRAM, DAILY
     Route: 042
  2. METHYLPREDNISOLONE [Suspect]
     Active Substance: METHYLPREDNISOLONE
     Dosage: 240 MILLIGRAM, DAILY
     Route: 042
  3. PREDNISONE [Suspect]
     Active Substance: PREDNISONE
     Indication: Pleural mesothelioma malignant
     Dosage: 1 MILLIGRAM/KILOGRAM, DAILY
     Route: 048

REACTIONS (2)
  - Therapeutic response decreased [Unknown]
  - Disease progression [Unknown]
